FAERS Safety Report 10731002 (Version 5)
Quarter: 2016Q1

REPORT INFORMATION
  Report Type: Spontaneous
  Country: US (occurrence: US)
  Receive Date: 20150122
  Receipt Date: 20160316
  Transmission Date: 20160525
  Serious: No
  Sender: FDA-Public Use
  Company Number: US-PFIZER INC-2015027428

PATIENT
  Sex: Male

DRUGS (2)
  1. LYRICA [Suspect]
     Active Substance: PREGABALIN
     Dosage: UNK
  2. INSULIN [Concomitant]
     Active Substance: INSULIN NOS

REACTIONS (7)
  - Skin discomfort [Unknown]
  - Malaise [Unknown]
  - Pain [Unknown]
  - Intentional product misuse [Unknown]
  - Nausea [Recovering/Resolving]
  - Insomnia [Unknown]
  - Weight increased [Unknown]
